FAERS Safety Report 7191973-5 (Version None)
Quarter: 2010Q4

REPORT INFORMATION
  Report Type: 
  Country: None (occurrence: None)
  Receive Date: 20101223
  Receipt Date: 20101215
  Transmission Date: 20110411
  Serious: Yes (Other)
  Sender: FDA-Public Use
  Company Number: PHHY2010US27140

PATIENT
  Sex: Female
  Weight: 56.689 kg

DRUGS (8)
  1. EXTAVIA [Suspect]
     Indication: MULTIPLE SCLEROSIS
     Dosage: 0.25 MG, QOD
     Route: 058
     Dates: start: 20100119
  2. EXTAVIA [Suspect]
     Dosage: 0.25 MG, QOD
     Route: 058
     Dates: start: 20100201
  3. EXTAVIA [Suspect]
     Dosage: 0.25 MG, QOD
     Route: 058
     Dates: start: 20100701
  4. CEPHADIN [Concomitant]
     Dosage: 1 DF, QHS
     Route: 048
     Dates: start: 20100101
  5. BACLOFEN [Concomitant]
     Dosage: 10 MG, TID
     Route: 048
     Dates: start: 20100101
  6. VERAPAMIL [Concomitant]
     Dosage: 40 MG, QD
     Route: 048
     Dates: start: 20100101
  7. AMPYRA [Concomitant]
     Dosage: 10 MG, BID
     Route: 048
  8. ACETAMINOPHEN [Concomitant]

REACTIONS (11)
  - ANGER [None]
  - BURNING SENSATION [None]
  - DEPRESSION [None]
  - DISTURBANCE IN ATTENTION [None]
  - FATIGUE [None]
  - FEELING ABNORMAL [None]
  - HOSTILITY [None]
  - INFLUENZA LIKE ILLNESS [None]
  - MULTIPLE SCLEROSIS RELAPSE [None]
  - MYALGIA [None]
  - RASH PUSTULAR [None]
